FAERS Safety Report 8239884-8 (Version None)
Quarter: 2012Q1

REPORT INFORMATION
  Report Type: 
  Country: None (occurrence: None)
  Receive Date: 20120327
  Receipt Date: 20120327
  Transmission Date: 20120608
  Serious: Yes (Other)
  Sender: FDA-Public Use
  Company Number: None

PATIENT
  Age: 61 Year
  Sex: Female
  Weight: 59 kg

DRUGS (4)
  1. CALCIUM CARBONATE [Concomitant]
  2. VITAMIN TAB [Concomitant]
  3. NEUTROGENA COSMETICS UNSPECIFIED [Suspect]
     Dosage: USED ON LIPS, 1XDAY, TOPICAL
     Route: 061
     Dates: end: 20120317
  4. HYDROCORTISONE [Suspect]
     Indication: RASH
     Dosage: MORE THAN DIME, 2X, TOPICAL
     Route: 061
     Dates: start: 20120309, end: 20120309

REACTIONS (4)
  - LIP DRY [None]
  - CHEILITIS [None]
  - SKIN CANCER [None]
  - LIP EXFOLIATION [None]
